FAERS Safety Report 24694932 (Version 1)
Quarter: 2024Q4

REPORT INFORMATION
  Report Type: Spontaneous
  Country: US (occurrence: None)
  Receive Date: 20241203
  Receipt Date: 20241203
  Transmission Date: 20250115
  Serious: Yes (Hospitalization)
  Sender: Public
  Company Number: None

PATIENT
  Sex: Female
  Weight: 55.34 kg

DRUGS (5)
  1. WINREVAIR [Suspect]
     Active Substance: SOTATERCEPT-CSRK
     Dosage: OTHER FREQUENCY : EVERY3WEEKS;?
     Route: 058
     Dates: start: 202407, end: 202411
  2. UPTRAVI [Suspect]
     Active Substance: SELEXIPAG
  3. UPTRAVI [Concomitant]
     Active Substance: SELEXIPAG
  4. AMBRISENTAN [Concomitant]
     Active Substance: AMBRISENTAN
  5. SILDENAFIL CITRATE [Concomitant]
     Active Substance: SILDENAFIL CITRATE

REACTIONS (3)
  - Pulmonary arterial hypertension [None]
  - Oxygen saturation decreased [None]
  - Therapy cessation [None]
